FAERS Safety Report 4975901-6 (Version None)
Quarter: 2006Q2

REPORT INFORMATION
  Report Type: 
  Country: None (occurrence: None)
  Receive Date: 20060412
  Receipt Date: 20060330
  Transmission Date: 20061013
  Serious: Yes (Death, Hospitalization)
  Sender: FDA-Public Use
  Company Number: S06-UKI-01323-01

PATIENT
  Age: 52 Year
  Sex: Male

DRUGS (2)
  1. CITALOPRAM HYDROBROMIDE [Suspect]
     Indication: DEPRESSION
     Dosage: 40 MG DAILY PO
     Route: 048
     Dates: start: 20050201, end: 20050317
  2. DIAZEPAM [Suspect]
     Dosage: 16 TABLET ONCE PO
     Route: 048
     Dates: start: 20050317

REACTIONS (4)
  - COMPLETED SUICIDE [None]
  - INJURY ASPHYXIATION [None]
  - OVERDOSE [None]
  - SUICIDE ATTEMPT [None]
